FAERS Safety Report 24185388 (Version 1)
Quarter: 2024Q3

REPORT INFORMATION
  Report Type: Spontaneous
  Country: US (occurrence: None)
  Receive Date: 20240807
  Receipt Date: 20240807
  Transmission Date: 20241016
  Serious: Yes (Other)
  Sender: Public
  Company Number: None

PATIENT
  Age: 66 Year
  Sex: Female

DRUGS (1)
  1. VERZENIO [Suspect]
     Active Substance: ABEMACICLIB
     Indication: Breast cancer
     Dosage: 100 MG TWICE A DAY ORAL
     Route: 048

REACTIONS (3)
  - Hypoaesthesia [None]
  - Pruritus [None]
  - Diarrhoea [None]

NARRATIVE: CASE EVENT DATE: 20240807
